FAERS Safety Report 8617857 (Version 2)
Quarter: 2013Q1

REPORT INFORMATION
  Report Type: Spontaneous
  Country: GB (occurrence: GB)
  Receive Date: 20120615
  Receipt Date: 20130320
  Transmission Date: 20140127
  Serious: Yes (Other)
  Sender: FDA-Public Use
  Company Number: GB-JNJFOC-20120604575

PATIENT
  Sex: Male

DRUGS (18)
  1. REMICADE [Suspect]
     Indication: RHEUMATOID ARTHRITIS
     Route: 042
  2. REMICADE [Suspect]
     Indication: RHEUMATOID ARTHRITIS
     Route: 042
     Dates: start: 20120628, end: 20120628
  3. DOXAZOSIN [Concomitant]
     Route: 065
  4. PARACETAMOL [Concomitant]
     Route: 065
  5. PREDNISOLONE [Concomitant]
     Dosage: ONCE IN MORNING
     Route: 065
  6. FLUOXETINE [Concomitant]
     Dosage: ONCE IN MORNING
     Route: 065
  7. OMEPRAZOLE [Concomitant]
     Dosage: ONCE IN MORNING
     Route: 065
  8. SULFASALAZINE [Concomitant]
     Route: 065
  9. ALFACALCIDOL [Concomitant]
     Dosage: ONCE IN MORNING
     Route: 065
  10. BISOPROLOL [Concomitant]
     Dosage: ONCE IN MORNING
     Route: 065
  11. OXYCODONE [Concomitant]
     Route: 065
  12. CLENIL MODULITE [Concomitant]
     Dosage: 200, 2PBD
     Route: 065
  13. ALL OTHER THERAPEUTICS [Concomitant]
     Route: 065
  14. SALBUTAMOL [Concomitant]
     Dosage: 100, 2P PM
     Route: 065
  15. ADALAT [Concomitant]
     Dosage: ONCE IN MORNING
     Route: 065
  16. FOLIC ACID [Concomitant]
     Dosage: ONCE IN MORNING
     Route: 065
  17. OXYCODONE [Concomitant]
     Dosage: PM
     Route: 065
  18. ASPIRIN [Concomitant]
     Dosage: AS PER 6 WEEKS STRNGTH 1.612
     Route: 065

REACTIONS (3)
  - Renal failure chronic [Unknown]
  - Renal dysplasia [Unknown]
  - Osteonecrosis [Unknown]
